FAERS Safety Report 4813930-3 (Version None)
Quarter: 2005Q4

REPORT INFORMATION
  Report Type: 
  Country: None (occurrence: None)
  Receive Date: 20051026
  Receipt Date: 20051010
  Transmission Date: 20060501
  Serious: Yes (Other)
  Sender: FDA-Public Use
  Company Number: USA0510110364

PATIENT
  Age: 46 Year
  Sex: Male

DRUGS (2)
  1. STRATTERA [Suspect]
  2. SEROQUEL [Concomitant]

REACTIONS (2)
  - DRUG DISPENSING ERROR [None]
  - SUICIDE ATTEMPT [None]
